FAERS Safety Report 6613333-5 (Version None)
Quarter: 2010Q1

REPORT INFORMATION
  Report Type: 
  Country: None (occurrence: None)
  Receive Date: 20100304
  Receipt Date: 20100225
  Transmission Date: 20100710
  Serious: Yes (Life-Threatening, Hospitalization)
  Sender: FDA-Public Use
  Company Number: PHHY2009DK20083

PATIENT
  Sex: Female
  Weight: 70 kg

DRUGS (9)
  1. LEPONEX [Suspect]
     Indication: PSYCHOTIC DISORDER
     Dosage: UNK
     Dates: start: 20081111
  2. LEPONEX [Suspect]
     Dosage: 150 MG, DAILY
     Route: 048
     Dates: start: 20081127
  3. LEPONEX [Suspect]
     Dosage: 600 MG, DAILY
     Route: 048
     Dates: start: 20090127, end: 20090307
  4. NITROFURANTOIN [Suspect]
     Indication: URINARY TRACT INFECTION
     Dosage: 50 MG, QD
     Dates: start: 20090217, end: 20090227
  5. DIANE MITE [Concomitant]
     Indication: ORAL CONTRACEPTION
     Dosage: 1 DF, QD
     Route: 048
     Dates: end: 20090309
  6. TRUXAL [Concomitant]
     Indication: DEPRESSION
     Dosage: 50 MG, PRN
     Dates: end: 20090307
  7. ZOLADEX [Concomitant]
  8. CISORDINOL [Concomitant]
  9. RISPERDAL [Concomitant]

REACTIONS (15)
  - ACUTE HEPATIC FAILURE [None]
  - BACK PAIN [None]
  - CEREBRAL HAEMORRHAGE [None]
  - COMA HEPATIC [None]
  - CONSTIPATION [None]
  - CONVULSION [None]
  - DIZZINESS [None]
  - HEPATOCELLULAR INJURY [None]
  - INFECTION [None]
  - LIVER DISORDER [None]
  - NAUSEA [None]
  - PHARYNGITIS [None]
  - PYREXIA [None]
  - SALIVARY HYPERSECRETION [None]
  - URINARY TRACT INFECTION [None]
